FAERS Safety Report 9466361 (Version 3)
Quarter: 2013Q3

REPORT INFORMATION
  Report Type: Report from Study
  Country: US (occurrence: US)
  Receive Date: 20130820
  Receipt Date: 20130823
  Transmission Date: 20140515
  Serious: Yes (Hospitalization)
  Sender: FDA-Public Use
  Company Number: US-ABBOTT-13P-163-1132922-00

PATIENT
  Age: 74 Year
  Sex: Female
  Weight: 68.1 kg

DRUGS (10)
  1. HUMIRA [Suspect]
     Indication: CROHN^S DISEASE
     Dosage: LOADING DOSE
     Dates: start: 20130729, end: 20130729
  2. WARFARIN [Concomitant]
     Indication: THROMBOSIS PROPHYLAXIS
  3. DIGOXIN [Concomitant]
     Indication: ATRIAL FIBRILLATION
  4. METOPROLOL [Concomitant]
     Indication: HYPERTENSION
  5. FUROSEMIDE [Concomitant]
     Indication: FLUID RETENTION
  6. IMURAN [Concomitant]
     Indication: CROHN^S DISEASE
  7. ASPIRIN [Concomitant]
     Indication: CARDIAC DISORDER
  8. IRON [Concomitant]
     Indication: MINERAL SUPPLEMENTATION
  9. IMMODIUM [Concomitant]
     Indication: DIARRHOEA
  10. LOVENOX [Concomitant]
     Indication: THROMBOSIS PROPHYLAXIS
     Dates: end: 20130621

REACTIONS (1)
  - Coagulation time shortened [Recovered/Resolved]
